FAERS Safety Report 6944635-0 (Version None)
Quarter: 2010Q3

REPORT INFORMATION
  Report Type: 
  Country: None (occurrence: None)
  Receive Date: 20100827
  Receipt Date: 20100814
  Transmission Date: 20110219
  Serious: Yes (Other)
  Sender: FDA-Public Use
  Company Number: FI-BAYER-201036544GPV

PATIENT
  Age: 66 Year
  Sex: Male

DRUGS (3)
  1. DACARBAZINE [Suspect]
     Indication: METASTATIC MALIGNANT MELANOMA
     Dosage: AS USED: 200 MG/M2
     Route: 042
  2. BEVACIZUMAB [Suspect]
     Indication: METASTATIC MALIGNANT MELANOMA
     Dosage: CYCLES, ON TREATMENT DAY 1 AND 15 EVERY 28 DAYS
     Route: 042
  3. ROFERON-A [Suspect]
     Indication: METASTATIC MALIGNANT MELANOMA
     Route: 058

REACTIONS (2)
  - EPISTAXIS [None]
  - HYPERTENSION [None]
